FAERS Safety Report 9662428 (Version 2)
Quarter: 2013Q4

REPORT INFORMATION
  Report Type: Spontaneous
  Country: US (occurrence: US)
  Receive Date: 20131031
  Receipt Date: 20131031
  Transmission Date: 20140711
  Serious: No
  Sender: FDA-Public Use
  Company Number: US-PURDUE-USA-2010-0051363

PATIENT
  Sex: Female

DRUGS (4)
  1. OXYCONTIN (NDA 22-272) [Suspect]
     Indication: PAIN
     Dosage: 320 MG, BID
     Dates: start: 20100907
  2. OXYCONTIN (NDA 22-272) [Suspect]
     Indication: INTERVERTEBRAL DISC PROTRUSION
  3. OXYCONTIN (NDA 22-272) [Suspect]
     Indication: ARTHRITIS
  4. OXYCONTIN (NDA 22-272) [Suspect]
     Indication: INTERVERTEBRAL DISC DEGENERATION

REACTIONS (6)
  - Haematochezia [Unknown]
  - Intentional drug misuse [Unknown]
  - Drug ineffective [Unknown]
  - Abdominal pain upper [Unknown]
  - Constipation [Unknown]
  - Pruritus [Unknown]
